FAERS Safety Report 6322141-4 (Version None)
Quarter: 2009Q3

REPORT INFORMATION
  Report Type: 
  Country: None (occurrence: None)
  Receive Date: 20090814
  Receipt Date: 20090630
  Transmission Date: 20100115
  Serious: Yes (Hospitalization, Other)
  Sender: FDA-Public Use
  Company Number: 83142

PATIENT
  Age: 58 Year
  Sex: Female

DRUGS (1)
  1. ETOPOSIDE [Suspect]
     Dates: start: 20090608

REACTIONS (2)
  - LABORATORY TEST ABNORMAL [None]
  - NAUSEA [None]
